FAERS Safety Report 5897069-4 (Version None)
Quarter: 2008Q3

REPORT INFORMATION
  Report Type: 
  Country: None (occurrence: None)
  Receive Date: 20080924
  Receipt Date: 20080710
  Transmission Date: 20090109
  Serious: Yes (Other)
  Sender: FDA-Public Use
  Company Number: US-ASTRAZENECA-2008UW13858

PATIENT
  Age: 23 Year
  Sex: Male

DRUGS (3)
  1. SEROQUEL XR [Suspect]
     Dosage: 300 MG
     Route: 048
     Dates: start: 20080705
  2. ZOLOFT [Concomitant]
  3. XANAX [Concomitant]

REACTIONS (1)
  - GRAND MAL CONVULSION [None]
